FAERS Safety Report 12777558 (Version 2)
Quarter: 2017Q4

REPORT INFORMATION
  Report Type: Spontaneous
  Country: US (occurrence: US)
  Receive Date: 20160924
  Receipt Date: 20171003
  Transmission Date: 20180320
  Serious: No
  Sender: FDA-Public Use
  Company Number: US-TEVA-694559USA

PATIENT
  Age: 29 Year
  Sex: Female

DRUGS (9)
  1. MONTELUKAST [Concomitant]
     Active Substance: MONTELUKAST SODIUM
  2. FLUTICASONE PROPRIONATE [Suspect]
     Active Substance: FLUTICASONE PROPIONATE
     Route: 045
     Dates: start: 20160811
  3. AZELASTINE HCL [Suspect]
     Active Substance: AZELASTINE HYDROCHLORIDE
     Dosage: 50 MICROGRAM DAILY; AM
     Route: 045
  4. METHYLPHENIDATE XR [Suspect]
     Active Substance: METHYLPHENIDATE
     Dosage: 27 MILLIGRAM DAILY; AM
  5. NUVARING [Suspect]
     Active Substance: ETHINYL ESTRADIOL\ETONOGESTREL
     Indication: CONTRACEPTION
     Route: 065
  6. CLONAZEPAM. [Suspect]
     Active Substance: CLONAZEPAM
     Indication: ANXIETY
     Route: 065
     Dates: start: 20160907, end: 20160907
  7. BAI DRINK (AMBROXOL HYDROCHLORIDE) [Suspect]
     Active Substance: AMBROXOL HYDROCHLORIDE
     Dates: start: 20160808
  8. ABILIFY [Concomitant]
     Active Substance: ARIPIPRAZOLE
  9. CONCERTA [Concomitant]
     Active Substance: METHYLPHENIDATE HYDROCHLORIDE

REACTIONS (9)
  - Musculoskeletal pain [Recovering/Resolving]
  - Photophobia [Recovering/Resolving]
  - Dizziness [Recovered/Resolved]
  - Palpitations [Recovered/Resolved]
  - Neck pain [Recovering/Resolving]
  - Tinnitus [Recovering/Resolving]
  - Blood pressure systolic decreased [Recovered/Resolved]
  - Panic attack [Recovered/Resolved]
  - Ear pain [Recovering/Resolving]
